FAERS Safety Report 9409693 (Version 1)
Quarter: 2013Q2

REPORT INFORMATION
  Report Type: Spontaneous
  Country: US (occurrence: None)
  Receive Date: 20130605
  Receipt Date: 20130605
  Transmission Date: 20140414
  Serious: Yes (Life-Threatening, Hospitalization)
  Sender: FDA-Public Use
  Company Number: 2013-0917

PATIENT
  Age: 65 Year
  Sex: Male
  Weight: 81 kg

DRUGS (12)
  1. CARFILZOMIB (CARFILZOMIB) (20 MILLIGRAM(S)/SQ.METER, INJECTION FOR INFUSION) (CARFILZOMIB) [Suspect]
     Indication: T-CELL LYMPHOMA
     Route: 042
     Dates: start: 20130522, end: 20130523
  2. ACETAMINOPHEN (PARACETAMOL) (PARACETAMOL) [Concomitant]
  3. FLUTICASONE (FLUTCASONE) (FLUTICASONE) [Concomitant]
  4. SOLU-MEDROL (METHYPREDNISOLOE SODIUM SUCCINATE) (METHYLPREDNISOLOE SODIUM SUCCINATE) [Concomitant]
  5. HYDROCORTISONE (HYDROCORTISONE) (HYDROCORTISONE) [Concomitant]
  6. HYDROMORPHONE (HYDROMORPONE) (HYDROMORPHONE) [Concomitant]
  7. LEVALBUTEROL (LEVOSALBUTAMOL) (LEVOSALBUTAMOL) [Concomitant]
  8. LEVOTHYROXINE (LEVOTHYROXINE) (LEVOTHROXINE) [Concomitant]
  9. ONDANSETRON (ONDANSETRON) (ONDANSETRON) [Concomitant]
  10. PANTOPRAZOLE (PANTOPRAZOLE) (PANTOPRAZOLE) [Concomitant]
  11. SENNOSIDE DOCUSATE SODIUM (SENNOSIDE A+B) (SENNOSIDE A+B) [Concomitant]
  12. TIOTROPIUM BROMIDE (TIOTROPIUM BROMIDE) (TIOTROPIUM BROMIDE) [Concomitant]

REACTIONS (11)
  - Nausea [None]
  - Vomiting [None]
  - Fatigue [None]
  - Asthenia [None]
  - Asthenia [None]
  - Pleural effusion [None]
  - Atelectasis [None]
  - Pneumonia [None]
  - Haemolytic anaemia [None]
  - Thrombocytopenia [None]
  - Abdominal pain [None]
